FAERS Safety Report 8650253 (Version 2)
Quarter: 2012Q4

REPORT INFORMATION
  Report Type: 
  Country: US (occurrence: US)
  Receive Date: 20120705
  Receipt Date: 20121023
  Transmission Date: 20130627
  Serious: No
  Sender: FDA-Public Use
  Company Number: US-PFIZER INC-2012158214

PATIENT
  Age: 85 Year
  Sex: Female

DRUGS (16)
  1. CELEBREX [Suspect]
     Indication: BACK PAIN
     Dosage: 200 mg, UNK
  2. HYDROXYZINE PAMOATE [Suspect]
     Dosage: UNK
  3. ALBUTEROL [Concomitant]
     Dosage: UNK
  4. AMOXICILLIN [Concomitant]
     Dosage: UNK
  5. BROVANA [Concomitant]
     Dosage: UNK
  6. ATIVAN [Concomitant]
     Dosage: UNK
  7. LORAZEPAM [Concomitant]
     Dosage: UNK
  8. AZOR [Concomitant]
     Dosage: UNK
  9. BYSTOLIC [Concomitant]
     Dosage: UNK
  10. BUDESONIDE [Concomitant]
     Dosage: UNK
  11. BUPROPION [Concomitant]
     Dosage: UNK
  12. CIPROFLOXACIN [Concomitant]
     Dosage: UNK
  13. OXYGEN [Concomitant]
     Dosage: UNK, at night
  14. PRILOSEC [Concomitant]
     Dosage: UNK
  15. SERTRALINE [Concomitant]
     Dosage: UNK
  16. ZOLPIDEM [Concomitant]
     Dosage: UNK

REACTIONS (2)
  - Diarrhoea [Recovered/Resolved]
  - Nausea [Recovered/Resolved]
